FAERS Safety Report 13167395 (Version 1)
Quarter: 2017Q1

REPORT INFORMATION
  Report Type: Spontaneous
  Country: BR (occurrence: BR)
  Receive Date: 20170131
  Receipt Date: 20170131
  Transmission Date: 20170428
  Serious: Yes (Hospitalization, Other)
  Sender: FDA-Public Use
  Company Number: BR-GLAXOSMITHKLINE-BR2017GSK011108

PATIENT
  Sex: Female

DRUGS (4)
  1. AEROLIN [Suspect]
     Active Substance: ALBUTEROL
     Indication: BRONCHITIS
     Route: 055
  2. AEROLIN [Suspect]
     Active Substance: ALBUTEROL
     Indication: BRONCHITIS
     Dosage: 3 UNK, QD
     Route: 048
  3. AEROLIN [Suspect]
     Active Substance: ALBUTEROL
     Indication: BRONCHITIS
     Route: 048
  4. AMINOPHYLLINE. [Suspect]
     Active Substance: AMINOPHYLLINE
     Indication: BRONCHITIS
     Dosage: 3 UNK, QD
     Route: 048

REACTIONS (6)
  - Drug ineffective [Unknown]
  - Bronchitis [Unknown]
  - Overdose [Unknown]
  - Dependence [Not Recovered/Not Resolved]
  - Malaise [Unknown]
  - Dyspnoea [Unknown]
